FAERS Safety Report 7463636-X (Version None)
Quarter: 2011Q2

REPORT INFORMATION
  Report Type: 
  Country: None (occurrence: None)
  Receive Date: 20110428
  Receipt Date: 20110418
  Transmission Date: 20111010
  Serious: Yes (Other)
  Sender: FDA-Public Use
  Company Number: 1000020261

PATIENT
  Sex: Female

DRUGS (3)
  1. ACTONEL [Suspect]
     Indication: OSTEOPOROSIS
     Dosage: 30 MG WEEKLY (30 MG, 1 IN 1 WK), ORAL
     Route: 048
     Dates: start: 20000701, end: 20040101
  2. THYROID TAB [Suspect]
     Dosage: ORAL
     Route: 048
     Dates: start: 20110401
  3. THYROID TAB [Suspect]
     Dosage: 1/2 GRAIN BEFORE BREAKFAST, LUNCH AND DINNER (30 MG, 3 IN 1 D), ORAL
     Route: 048
     Dates: start: 20040101, end: 20060101

REACTIONS (2)
  - HEART RATE INCREASED [None]
  - ATRIAL FIBRILLATION [None]
